FAERS Safety Report 18111569 (Version 1)
Quarter: 2020Q3

REPORT INFORMATION
  Report Type: Spontaneous
  Country: CN (occurrence: CN)
  Receive Date: 20200804
  Receipt Date: 20200804
  Transmission Date: 20201103
  Serious: Yes (Life-Threatening, Other)
  Sender: FDA-Public Use
  Company Number: NVSC2020CN101001

PATIENT
  Age: 24 Year
  Sex: Female
  Weight: 62.5 kg

DRUGS (2)
  1. TRILEPTAL [Suspect]
     Active Substance: OXCARBAZEPINE
     Indication: PRODUCT USED FOR UNKNOWN INDICATION
     Dosage: 3 DF, QD (WHEN THE PATIENT WAS ABOUT 16 YEARS OLD)
     Route: 048
     Dates: start: 2012
  2. TRILEPTAL [Suspect]
     Active Substance: OXCARBAZEPINE
     Dosage: 4 DF, BID (2 TABLETS IN THE MORNING, 2 TABLETS IN THE EVENING)
     Route: 048
     Dates: start: 2013

REACTIONS (3)
  - Dizziness [Unknown]
  - Drug ineffective [Unknown]
  - Epilepsy [Not Recovered/Not Resolved]

NARRATIVE: CASE EVENT DATE: 20200412
